FAERS Safety Report 12272593 (Version 1)
Quarter: 2016Q2

REPORT INFORMATION
  Report Type: Report from Study
  Country: US (occurrence: US)
  Receive Date: 20160415
  Receipt Date: 20160415
  Transmission Date: 20160815
  Serious: Yes (Hospitalization, Other)
  Sender: FDA-Public Use
  Company Number: ADR-2015-01255

PATIENT
  Age: 71 Year
  Sex: Male

DRUGS (1)
  1. BACLOFEN INTRATHECAL [Suspect]
     Active Substance: BACLOFEN
     Indication: MUSCLE SPASTICITY
     Dosage: 52.80 MCG/DAY
     Route: 037

REACTIONS (9)
  - Muscular weakness [Recovered/Resolved]
  - Adverse drug reaction [Recovered/Resolved]
  - Device inversion [None]
  - Condition aggravated [Unknown]
  - Device breakage [None]
  - Procedural hypotension [Recovered/Resolved]
  - Gait disturbance [Recovered/Resolved]
  - Device kink [None]
  - Hypotension [Recovered/Resolved]

NARRATIVE: CASE EVENT DATE: 20131202
